FAERS Safety Report 4313011-1 (Version None)
Quarter: 2004Q1

REPORT INFORMATION
  Report Type: 
  Country: None (occurrence: None)
  Receive Date: 20040308
  Receipt Date: 20040105
  Transmission Date: 20041129
  Serious: Yes (Death, Other)
  Sender: FDA-Public Use
  Company Number: 200410011FR

PATIENT
  Age: 78 Year
  Sex: Male

DRUGS (4)
  1. TAXOTERE [Suspect]
     Indication: LUNG SQUAMOUS CELL CARCINOMA STAGE III
     Route: 042
     Dates: start: 20030930, end: 20030930
  2. MOTILIUM [Concomitant]
  3. SOLUPRED [Concomitant]
  4. DURAGESIC [Concomitant]

REACTIONS (9)
  - ACUTE RESPIRATORY DISTRESS SYNDROME [None]
  - C-REACTIVE PROTEIN INCREASED [None]
  - INTERSTITIAL LUNG DISEASE [None]
  - LEUKOCYTOSIS [None]
  - MICROCYTIC ANAEMIA [None]
  - PNEUMONIA [None]
  - PNEUMONITIS [None]
  - PULMONARY FIBROSIS [None]
  - URINARY TRACT INFECTION STAPHYLOCOCCAL [None]
